FAERS Safety Report 19367185 (Version 4)
Quarter: 2021Q3

REPORT INFORMATION
  Report Type: Spontaneous
  Country: DE (occurrence: DE)
  Receive Date: 20210603
  Receipt Date: 20210924
  Transmission Date: 20211014
  Serious: Yes (Life-Threatening, Hospitalization, Other)
  Sender: FDA-Public Use
  Company Number: DE-MYLANLABS-2021M1030975

PATIENT
  Age: 58 Year
  Sex: Female

DRUGS (6)
  1. TEMOZOLOMIDE. [Suspect]
     Active Substance: TEMOZOLOMIDE
     Dosage: 150 MILLIGRAM/SQ. METER, CYCLE
     Route: 048
     Dates: start: 201906, end: 201907
  2. CAPECITABINE. [Suspect]
     Active Substance: CAPECITABINE
     Indication: METASTASES TO LIVER
     Dosage: 540 MILLIGRAM/SQ. METER
     Route: 048
     Dates: start: 201906, end: 201908
  3. TEMOZOLOMIDE. [Suspect]
     Active Substance: TEMOZOLOMIDE
     Indication: NEUROENDOCRINE TUMOUR
     Dosage: UNK
  4. TEMOZOLOMIDE. [Suspect]
     Active Substance: TEMOZOLOMIDE
     Indication: METASTASES TO LIVER
     Dosage: 150 MILLIGRAM/SQ. METER
     Route: 048
     Dates: start: 201906, end: 201908
  5. CAPECITABINE. [Suspect]
     Active Substance: CAPECITABINE
     Dosage: 540 MILLIGRAM/SQ. METER, CYCLE
     Route: 048
     Dates: start: 201906, end: 201907
  6. CAPECITABINE. [Suspect]
     Active Substance: CAPECITABINE
     Indication: NEUROENDOCRINE TUMOUR
     Dosage: UNK
     Route: 048

REACTIONS (8)
  - Mastitis [Recovered/Resolved]
  - Febrile neutropenia [Recovered/Resolved]
  - Pneumonia fungal [Recovered/Resolved]
  - Pancytopenia [Recovered/Resolved]
  - Breast necrosis [Recovered/Resolved]
  - Myelosuppression [Recovered/Resolved]
  - Bone marrow failure [Recovered/Resolved]
  - Haematotoxicity [Recovered/Resolved]

NARRATIVE: CASE EVENT DATE: 201907
